FAERS Safety Report 24381376 (Version 7)
Quarter: 2025Q1

REPORT INFORMATION
  Report Type: Spontaneous
  Country: GB (occurrence: GB)
  Receive Date: 20241001
  Receipt Date: 20250211
  Transmission Date: 20250409
  Serious: Yes (Hospitalization, Other)
  Sender: JUBILANT
  Company Number: GB-NORGINE LIMITED-2017MRS000072

PATIENT
  Age: 55 Year
  Sex: Male

DRUGS (60)
  1. QUETIAPINE FUMARATE [Interacting]
     Active Substance: QUETIAPINE FUMARATE
     Indication: Depression
     Route: 048
     Dates: start: 20150826
  2. BOCOCIZUMAB [Suspect]
     Active Substance: BOCOCIZUMAB
     Indication: Angina pectoris
     Route: 058
  3. BOCOCIZUMAB [Suspect]
     Active Substance: BOCOCIZUMAB
     Indication: Cardiovascular disorder
     Route: 058
     Dates: start: 20150908, end: 20161101
  4. BOCOCIZUMAB [Suspect]
     Active Substance: BOCOCIZUMAB
     Dosage: 50 MG, ONCE PER DAY
     Route: 058
     Dates: start: 20110616
  5. IVABRADINE [Interacting]
     Active Substance: IVABRADINE
     Indication: Angina pectoris
     Dates: start: 20150211
  6. IVABRADINE [Interacting]
     Active Substance: IVABRADINE
     Dosage: 5 MG, BID, 12 HOURLY
     Dates: start: 20150211
  7. IVABRADINE [Interacting]
     Active Substance: IVABRADINE
     Dosage: 5 MG, ONCE PER DAY
     Dates: start: 20150211
  8. IVABRADINE [Interacting]
     Active Substance: IVABRADINE
     Dosage: 5 MG, BID, 12 HOURLY
     Dates: start: 20150211
  9. RAMIPRIL [Interacting]
     Active Substance: RAMIPRIL
     Indication: Cardiac failure
     Dosage: 1.25 MG, QD
     Route: 048
     Dates: start: 20130813, end: 20160629
  10. RAMIPRIL [Interacting]
     Active Substance: RAMIPRIL
     Dosage: 1MG, QD,
     Route: 048
     Dates: start: 20130813, end: 20160629
  11. IVABRADINE HYDROCHLORIDE [Suspect]
     Active Substance: IVABRADINE HYDROCHLORIDE
     Indication: Angina pectoris
     Dosage: 5 MG, BID, 12 HOURLY
     Dates: start: 20150211
  12. IVABRADINE HYDROCHLORIDE [Suspect]
     Active Substance: IVABRADINE HYDROCHLORIDE
     Dates: start: 20150211
  13. IVABRADINE HYDROCHLORIDE [Suspect]
     Active Substance: IVABRADINE HYDROCHLORIDE
     Dosage: 5 MG, QD
     Dates: start: 20150211
  14. IVABRADINE HYDROCHLORIDE [Suspect]
     Active Substance: IVABRADINE HYDROCHLORIDE
     Dosage: 10 MG, ONCE PER DAY (10 MG, QD (5 MG, BID) )
     Route: 065
     Dates: start: 20150211
  15. ISOSORBIDE MONONITRATE [Interacting]
     Active Substance: ISOSORBIDE MONONITRATE
     Indication: Angina pectoris
     Dosage: 10 MG, QD, MODIFIED-RELEASE CAPSULE, HARD,
     Route: 048
     Dates: start: 20160205
  16. OMEPRAZOLE [Interacting]
     Active Substance: OMEPRAZOLE
     Indication: Duodenal ulcer
     Route: 048
     Dates: start: 20140116
  17. OMEPRAZOLE [Interacting]
     Active Substance: OMEPRAZOLE
     Indication: Dyspepsia
  18. OMEPRAZOLE [Interacting]
     Active Substance: OMEPRAZOLE
     Indication: Pain in extremity
  19. CARVEDILOL [Interacting]
     Active Substance: CARVEDILOL
     Indication: Angina pectoris
     Dosage: 25 MG, BID
     Route: 065
     Dates: start: 20110616
  20. CARVEDILOL [Interacting]
     Active Substance: CARVEDILOL
     Dosage: 25 MG, ONCE PER DAY
     Route: 065
     Dates: start: 20110616
  21. CARVEDILOL [Interacting]
     Active Substance: CARVEDILOL
     Dosage: 25 MG, BID
     Route: 065
     Dates: start: 20110616
  22. CARVEDILOL [Interacting]
     Active Substance: CARVEDILOL
     Dosage: 25 MG, BID
     Route: 065
     Dates: start: 20110616
  23. FUROSEMIDE [Interacting]
     Active Substance: FUROSEMIDE
     Indication: Pleural effusion
     Dosage: 80 MG, QD
     Route: 048
     Dates: start: 20160402
  24. FUROSEMIDE [Interacting]
     Active Substance: FUROSEMIDE
     Indication: Pulmonary oedema
     Dosage: 40 MG, QD
     Dates: start: 20160402
  25. FUROSEMIDE [Interacting]
     Active Substance: FUROSEMIDE
     Indication: Left ventricular dysfunction
     Dosage: 40 MG, QD
     Dates: start: 20160402
  26. FUROSEMIDE [Interacting]
     Active Substance: FUROSEMIDE
     Indication: Lung disorder
     Dosage: 40 MG, QD
     Dates: start: 20160402
  27. QUETIAPINE FUMARATE [Concomitant]
     Active Substance: QUETIAPINE FUMARATE
     Indication: Depression
     Route: 048
     Dates: start: 20150826
  28. IVABRADINE HYDROCHLORIDE [Concomitant]
     Active Substance: IVABRADINE HYDROCHLORIDE
     Indication: Angina pectoris
     Dosage: 5 MG, BID
     Route: 065
     Dates: start: 20150211
  29. IVABRADINE HYDROCHLORIDE [Concomitant]
     Active Substance: IVABRADINE HYDROCHLORIDE
     Route: 065
     Dates: start: 20150211
  30. IVABRADINE HYDROCHLORIDE [Concomitant]
     Active Substance: IVABRADINE HYDROCHLORIDE
     Dosage: 5 MG, ONCE PER DAY
     Route: 065
     Dates: start: 20150211
  31. IVABRADINE HYDROCHLORIDE [Concomitant]
     Active Substance: IVABRADINE HYDROCHLORIDE
     Dosage: 5 MG, BID
     Route: 065
     Dates: start: 20150211
  32. IVABRADINE HYDROCHLORIDE [Concomitant]
     Active Substance: IVABRADINE HYDROCHLORIDE
     Dosage: 5 MG, BID
     Route: 065
     Dates: start: 20150211
  33. NITROGLYCERIN [Concomitant]
     Active Substance: NITROGLYCERIN
     Indication: Cardiovascular disorder
     Route: 048
     Dates: start: 20130902
  34. NITROGLYCERIN [Concomitant]
     Active Substance: NITROGLYCERIN
     Indication: Pain
  35. OMEPRAZOLE [Concomitant]
     Active Substance: OMEPRAZOLE
     Indication: Dyspepsia
     Route: 065
     Dates: start: 20140116
  36. FOLIC ACID [Concomitant]
     Active Substance: FOLIC ACID
     Indication: Anaemia
     Route: 065
     Dates: start: 20131211
  37. METHOTREXATE [Concomitant]
     Active Substance: METHOTREXATE
     Indication: Psoriasis
     Route: 065
     Dates: start: 20150727
  38. ASPIRIN [Concomitant]
     Active Substance: ASPIRIN
     Indication: Cardiovascular disorder
     Route: 065
     Dates: start: 20130708
  39. CODEINE PHOSPHATE [Concomitant]
     Active Substance: CODEINE PHOSPHATE
     Indication: Product used for unknown indication
     Route: 005
  40. BETAMETHASONE DIPROPIONATE\CLOTRIMAZOLE [Concomitant]
     Active Substance: BETAMETHASONE DIPROPIONATE\CLOTRIMAZOLE
     Indication: Psoriasis
     Dates: start: 20150626
  41. ATORVASTATIN [Concomitant]
     Active Substance: ATORVASTATIN
     Indication: Cardiovascular disorder
     Route: 065
     Dates: start: 20130708
  42. ACETAMINOPHEN\CODEINE PHOSPHATE [Concomitant]
     Active Substance: ACETAMINOPHEN\CODEINE PHOSPHATE
     Indication: Pain in extremity
     Dates: start: 20110616
  43. ACETAMINOPHEN\CODEINE PHOSPHATE [Concomitant]
     Active Substance: ACETAMINOPHEN\CODEINE PHOSPHATE
     Indication: Pain in extremity
     Dates: start: 20110616
  44. ACETAMINOPHEN\CODEINE PHOSPHATE [Concomitant]
     Active Substance: ACETAMINOPHEN\CODEINE PHOSPHATE
     Dates: start: 20110616
  45. ACETAMINOPHEN\CODEINE PHOSPHATE [Concomitant]
     Active Substance: ACETAMINOPHEN\CODEINE PHOSPHATE
     Dates: start: 20110616
  46. ACETAMINOPHEN\CODEINE PHOSPHATE [Concomitant]
     Active Substance: ACETAMINOPHEN\CODEINE PHOSPHATE
     Dates: start: 20110616
  47. ACETAMINOPHEN [Concomitant]
     Active Substance: ACETAMINOPHEN
     Indication: Pain in extremity
     Route: 065
     Dates: start: 20110616
  48. ACETAMINOPHEN [Concomitant]
     Active Substance: ACETAMINOPHEN
     Route: 065
     Dates: start: 20160616
  49. SACUBITRIL [Concomitant]
     Active Substance: SACUBITRIL
     Indication: Left ventricular dysfunction
     Route: 065
     Dates: start: 20160601
  50. SACUBITRIL [Concomitant]
     Active Substance: SACUBITRIL
     Route: 065
     Dates: start: 20160601
  51. SACUBITRIL [Concomitant]
     Active Substance: SACUBITRIL
     Route: 065
     Dates: start: 20160701
  52. ENTRESTO [Concomitant]
     Active Substance: SACUBITRIL\VALSARTAN
     Indication: Left ventricular dysfunction
     Route: 048
  53. ENTRESTO [Concomitant]
     Active Substance: SACUBITRIL\VALSARTAN
     Dates: start: 20160701
  54. ENTRESTO [Concomitant]
     Active Substance: SACUBITRIL\VALSARTAN
     Route: 048
     Dates: start: 20160601
  55. ENTRESTO [Concomitant]
     Active Substance: SACUBITRIL\VALSARTAN
     Dates: start: 20160701
  56. ENTRESTO [Concomitant]
     Active Substance: SACUBITRIL\VALSARTAN
  57. SERTRALINE HYDROCHLORIDE [Concomitant]
     Active Substance: SERTRALINE HYDROCHLORIDE
     Indication: Depression
     Route: 065
     Dates: start: 20160701
  58. SERTRALINE HYDROCHLORIDE [Concomitant]
     Active Substance: SERTRALINE HYDROCHLORIDE
     Dates: start: 20110616
  59. SERTRALINE HYDROCHLORIDE [Concomitant]
     Active Substance: SERTRALINE HYDROCHLORIDE
     Dates: start: 20110816
  60. BETAMETHASONE DIPROPIONATE [Concomitant]
     Active Substance: BETAMETHASONE DIPROPIONATE
     Indication: Psoriasis
     Route: 065
     Dates: start: 20060626

REACTIONS (12)
  - Contusion [Recovered/Resolved]
  - Anaemia [Unknown]
  - Drug interaction [Recovered/Resolved]
  - Pulmonary oedema [Unknown]
  - Cardiac failure [Unknown]
  - Psoriasis [Unknown]
  - Oedema peripheral [Not Recovered/Not Resolved]
  - Ventricular dysfunction [Unknown]
  - Angina pectoris [Unknown]
  - Fluid retention [Not Recovered/Not Resolved]
  - Hypotension [Recovered/Resolved]
  - Presyncope [Unknown]

NARRATIVE: CASE EVENT DATE: 20130919
